FAERS Safety Report 8156627-7 (Version None)
Quarter: 2012Q1

REPORT INFORMATION
  Report Type: 
  Country: None (occurrence: None)
  Receive Date: 20120222
  Receipt Date: 20120209
  Transmission Date: 20120608
  Serious: Yes (Hospitalization, Other)
  Sender: FDA-Public Use
  Company Number: CN-JNJFOC-20110503047

PATIENT
  Age: 24 Year
  Sex: Female

DRUGS (2)
  1. CETIRIZINE HCL [Suspect]
     Route: 048
  2. CETIRIZINE HCL [Suspect]
     Indication: DERMATITIS
     Route: 048
     Dates: start: 20090819, end: 20090801

REACTIONS (4)
  - TORSADE DE POINTES [None]
  - SYNCOPE [None]
  - CONVULSION [None]
  - ACCIDENTAL OVERDOSE [None]
